FAERS Safety Report 15117341 (Version 1)
Quarter: 2018Q3

REPORT INFORMATION
  Report Type: Spontaneous
  Country: US (occurrence: US)
  Receive Date: 20180612
  Receipt Date: 20180612
  Transmission Date: 20181010
  Serious: Yes (Disabling, Other)
  Sender: FDA-Public Use
  Company Number: None

PATIENT
  Age: 35 Year
  Sex: Female
  Weight: 72 kg

DRUGS (5)
  1. CONCERTA [Concomitant]
     Active Substance: METHYLPHENIDATE HYDROCHLORIDE
  2. BROMELAIN [Concomitant]
     Active Substance: BROMELAINS
  3. SCOPOLAMINE PATCH [Suspect]
     Active Substance: SCOPOLAMINE
     Indication: ANTIEMETIC SUPPORTIVE CARE
     Dosage: ?          QUANTITY:1 PATCH(ES);OTHER FREQUENCY:1TIME PATCH;?
     Route: 062
     Dates: start: 20180606, end: 20180609
  4. ARMOUR THYROID [Concomitant]
     Active Substance: THYROID, PORCINE
  5. ARNICA [Concomitant]
     Active Substance: ARNICA MONTANA FLOWER

REACTIONS (12)
  - Eating disorder [None]
  - Vision blurred [None]
  - Reading disorder [None]
  - Cerebral disorder [None]
  - Tremor [None]
  - Eye irritation [None]
  - Ocular discomfort [None]
  - Insomnia [None]
  - Dysuria [None]
  - Speech disorder [None]
  - Dysgraphia [None]
  - Akathisia [None]

NARRATIVE: CASE EVENT DATE: 20180607
